FAERS Safety Report 7370010-3 (Version None)
Quarter: 2011Q1

REPORT INFORMATION
  Report Type: 
  Country: None (occurrence: None)
  Receive Date: 20110323
  Receipt Date: 20110321
  Transmission Date: 20110831
  Serious: Yes (Other)
  Sender: FDA-Public Use
  Company Number: US-PFIZER INC-2011061785

PATIENT
  Age: 19 Year
  Sex: Female

DRUGS (3)
  1. LAMOTRIGINE [Concomitant]
     Indication: BIPOLAR DISORDER
  2. DEXTROMETHORPHAN HBR [Suspect]
  3. MINOCYCLINE [Concomitant]
     Indication: ACNE

REACTIONS (2)
  - CONVULSION [None]
  - DRUG ABUSE [None]
